FAERS Safety Report 5702426-2 (Version None)
Quarter: 2008Q2

REPORT INFORMATION
  Report Type: 
  Country: None (occurrence: None)
  Receive Date: 20080411
  Receipt Date: 20080402
  Transmission Date: 20081010
  Serious: Yes (Hospitalization, Other)
  Sender: FDA-Public Use
  Company Number: JP-BRISTOL-MYERS SQUIBB COMPANY-14132617

PATIENT
  Age: 28 Year
  Sex: Male

DRUGS (6)
  1. GATIFLO TABS [Suspect]
     Indication: SINUSITIS
     Dosage: ALSO TAKEN FROM 13MAR-16MAR08
     Route: 048
     Dates: start: 20080320, end: 20080320
  2. MUCODYNE [Suspect]
     Indication: SINUSITIS
     Route: 048
     Dates: start: 20080311, end: 20080320
  3. MEFENAMIC ACID [Suspect]
     Indication: SINUSITIS
     Route: 048
     Dates: start: 20080320, end: 20080320
  4. ALLELOCK [Suspect]
     Indication: SINUSITIS
     Route: 048
     Dates: start: 20080320, end: 20080320
  5. GASLON N [Suspect]
     Indication: SINUSITIS
     Route: 048
     Dates: start: 20080311, end: 20080320
  6. TAMIFLU [Concomitant]
     Route: 048
     Dates: start: 20080316, end: 20080319

REACTIONS (1)
  - ANAPHYLACTOID REACTION [None]
